FAERS Safety Report 6342635-5 (Version None)
Quarter: 2009Q3

REPORT INFORMATION
  Report Type: 
  Country: None (occurrence: None)
  Receive Date: 20090908
  Receipt Date: 20090903
  Transmission Date: 20100115
  Serious: No
  Sender: FDA-Public Use
  Company Number: US-JNJFOC-20071000689

PATIENT
  Sex: Male
  Weight: 100.7 kg

DRUGS (4)
  1. DURAGESIC-100 [Suspect]
     Route: 062
  2. DURAGESIC-100 [Suspect]
     Indication: PAIN
     Dosage: 25 UG/HR AND 75 UG/HR
     Route: 062
  3. MESYLATE [Concomitant]
     Indication: HYPERTENSION
     Route: 048
  4. PERCOCET [Concomitant]
     Indication: ARTHRALGIA
     Dosage: UP TO 6 DAILY
     Route: 048

REACTIONS (3)
  - APPLICATION SITE ERYTHEMA [None]
  - INAPPROPRIATE SCHEDULE OF DRUG ADMINISTRATION [None]
  - SKIN DISORDER [None]
